FAERS Safety Report 7409730-0 (Version None)
Quarter: 2011Q2

REPORT INFORMATION
  Report Type: 
  Country: None (occurrence: None)
  Receive Date: 20110412
  Receipt Date: 20110406
  Transmission Date: 20111010
  Serious: Yes (Other)
  Sender: FDA-Public Use
  Company Number: FR-GILEAD-2010-0034402

PATIENT
  Sex: Female
  Weight: 60 kg

DRUGS (4)
  1. AERIUS [Concomitant]
     Indication: PRURITUS
     Dates: start: 20101201
  2. VIRAMUNE [Concomitant]
     Indication: HIV INFECTION
     Dates: start: 20070514
  3. RETROVIR [Concomitant]
     Indication: PROPHYLAXIS AGAINST HIV INFECTION
     Dates: start: 20110212
  4. TRUVADA [Suspect]
     Indication: HIV INFECTION
     Route: 048
     Dates: start: 20070514

REACTIONS (2)
  - PYELONEPHRITIS [None]
  - PREGNANCY [None]
